FAERS Safety Report 20775621 (Version 1)
Quarter: 2022Q2

REPORT INFORMATION
  Report Type: Report from Study
  Country: US (occurrence: US)
  Receive Date: 20220502
  Receipt Date: 20220502
  Transmission Date: 20220720
  Serious: Yes (Other)
  Sender: FDA-Public Use
  Company Number: US-TEVA-2022-US-2032206

PATIENT
  Sex: Female

DRUGS (1)
  1. CLARAVIS [Suspect]
     Active Substance: ISOTRETINOIN
     Dosage: FORM STRENGTH:20MG, ROUTE OF ADMIN AND DOSAGE:UNKNOWN
     Route: 065

REACTIONS (1)
  - Sleep disorder [Unknown]
